FAERS Safety Report 14208479 (Version 2)
Quarter: 2018Q3

REPORT INFORMATION
  Report Type: Spontaneous
  Country: FR (occurrence: FR)
  Receive Date: 20171121
  Receipt Date: 20180809
  Transmission Date: 20181010
  Serious: Yes (Other)
  Sender: FDA-Public Use
  Company Number: FR-MERCK KGAA-2034758

PATIENT
  Age: 38 Year
  Sex: Female
  Weight: 75 kg

DRUGS (6)
  1. TEMERIT DUO [Concomitant]
     Active Substance: HYDROCHLOROTHIAZIDE\NEBIVOLOL HYDROCHLORIDE
     Route: 048
     Dates: start: 201606
  2. TRAMADOL. [Concomitant]
     Active Substance: TRAMADOL
     Route: 048
  3. SKENAN [Concomitant]
     Active Substance: MORPHINE SULFATE
     Route: 048
     Dates: start: 201709
  4. NOVOTHYROX [Suspect]
     Active Substance: LEVOTHYROXINE SODIUM
     Indication: THYROIDECTOMY
     Route: 048
     Dates: start: 201705, end: 201709
  5. EPITOMAX [Concomitant]
     Active Substance: TOPIRAMATE
     Route: 048
  6. SKENAN [Concomitant]
     Active Substance: MORPHINE SULFATE
     Route: 048
     Dates: start: 201708

REACTIONS (24)
  - Depressed mood [Recovering/Resolving]
  - Weight decreased [Recovering/Resolving]
  - Thirst [Recovering/Resolving]
  - Vertigo [Recovering/Resolving]
  - Diarrhoea [Recovering/Resolving]
  - Blood thyroid stimulating hormone normal [Recovered/Resolved]
  - Disturbance in attention [Not Recovered/Not Resolved]
  - Memory impairment [Not Recovered/Not Resolved]
  - Diffuse alopecia [Recovering/Resolving]
  - Decreased appetite [Recovering/Resolving]
  - Eye disorder [Not Recovered/Not Resolved]
  - Temperature intolerance [Not Recovered/Not Resolved]
  - Formication [Recovering/Resolving]
  - Myalgia [Recovering/Resolving]
  - Fatigue [Not Recovered/Not Resolved]
  - Insomnia [Recovering/Resolving]
  - Hot flush [Recovering/Resolving]
  - Irritability [Recovering/Resolving]
  - Muscle spasms [Recovering/Resolving]
  - Pruritus generalised [Recovering/Resolving]
  - Infection [Not Recovered/Not Resolved]
  - Loss of libido [Recovering/Resolving]
  - Headache [Not Recovered/Not Resolved]
  - Hypertriglyceridaemia [Not Recovered/Not Resolved]

NARRATIVE: CASE EVENT DATE: 2017
